FAERS Safety Report 16768936 (Version 2)
Quarter: 2019Q3

REPORT INFORMATION
  Report Type: Spontaneous
  Country: US (occurrence: US)
  Receive Date: 20190903
  Receipt Date: 20190913
  Transmission Date: 20191005
  Serious: Yes (Other)
  Sender: FDA-Public Use
  Company Number: US-SA-2019SA240815

PATIENT
  Age: 88 Year
  Sex: Female

DRUGS (1)
  1. LANTUS SOLOSTAR [Suspect]
     Active Substance: INSULIN GLARGINE
     Indication: TYPE 2 DIABETES MELLITUS
     Dosage: 20 U, QD
     Route: 058

REACTIONS (4)
  - Diabetes mellitus inadequate control [Unknown]
  - Device leakage [Unknown]
  - Blood glucose abnormal [Unknown]
  - Incorrect dose administered by device [Unknown]
